FAERS Safety Report 10712437 (Version 1)
Quarter: 2015Q1

REPORT INFORMATION
  Report Type: Report from Study
  Country: FR (occurrence: FR)
  Receive Date: 20150115
  Receipt Date: 20150115
  Transmission Date: 20150721
  Serious: Yes (Other)
  Sender: FDA-Public Use
  Company Number: FR-ROCHE-1521206

PATIENT
  Age: 64 Year
  Sex: Female

DRUGS (4)
  1. RITUXIMAB [Suspect]
     Active Substance: RITUXIMAB
     Indication: RHEUMATOID ARTHRITIS
     Dosage: ON 05/FEB/2008, RECIVED D15 1 G DOSE
     Route: 042
     Dates: start: 20080122
  2. CORTANCYL [Concomitant]
     Active Substance: PREDNISONE
     Dosage: FOR THE FIRST INFUSION
     Route: 065
  3. METHOTREXATE [Concomitant]
     Active Substance: METHOTREXATE
     Dosage: FOR THE FIRST INFUSION
     Route: 065
  4. CORTANCYL [Concomitant]
     Active Substance: PREDNISONE
     Dosage: FOR THE SECOND INFUSION
     Route: 065

REACTIONS (5)
  - Metastases to bone [Not Recovered/Not Resolved]
  - Sleep disorder [Not Recovered/Not Resolved]
  - Embolism [Not Recovered/Not Resolved]
  - Pain [Not Recovered/Not Resolved]
  - Hypertension [Not Recovered/Not Resolved]

NARRATIVE: CASE EVENT DATE: 201010
